FAERS Safety Report 7470829-4 (Version None)
Quarter: 2011Q2

REPORT INFORMATION
  Report Type: 
  Country: None (occurrence: None)
  Receive Date: 20110502
  Receipt Date: 20110422
  Transmission Date: 20111010
  Serious: Yes (Hospitalization, Disabling, Other)
  Sender: FDA-Public Use
  Company Number: 2009SP017417

PATIENT
  Age: 23 Year
  Sex: Female
  Weight: 63.5036 kg

DRUGS (2)
  1. NUVARING [Suspect]
     Indication: CONTRACEPTION
     Dosage: 1 DF;QM;VAG
     Route: 067
     Dates: start: 20060101, end: 20061016
  2. ADVIL LIQUI-GELS [Concomitant]

REACTIONS (15)
  - PELVIC VENOUS THROMBOSIS [None]
  - HEADACHE [None]
  - ANAEMIA [None]
  - DYSPLASTIC NAEVUS [None]
  - FIBROADENOMA OF BREAST [None]
  - GAIT DISTURBANCE [None]
  - VENOUS STENOSIS [None]
  - BREAST DISCHARGE [None]
  - DEEP VEIN THROMBOSIS [None]
  - PHOTOPSIA [None]
  - PAIN [None]
  - FIBRIN D DIMER INCREASED [None]
  - MAY-THURNER SYNDROME [None]
  - VENOUS INSUFFICIENCY [None]
  - FIBROCYSTIC BREAST DISEASE [None]
